FAERS Safety Report 8298662-4 (Version None)
Quarter: 2012Q2

REPORT INFORMATION
  Report Type: 
  Country: None (occurrence: None)
  Receive Date: 20120419
  Receipt Date: 20120410
  Transmission Date: 20120825
  Serious: Yes (Hospitalization)
  Sender: FDA-Public Use
  Company Number: CA-JNJFOC-20120404944

PATIENT
  Sex: Female
  Weight: 76.8 kg

DRUGS (5)
  1. REMICADE [Suspect]
     Indication: CROHN'S DISEASE
     Route: 042
     Dates: start: 20090727
  2. TRIPTILIN [Concomitant]
     Route: 065
  3. PREVACID [Concomitant]
     Route: 065
  4. SEROQUEL [Concomitant]
     Route: 065
  5. MARIJUANA [Concomitant]
     Route: 065

REACTIONS (1)
  - DIVERTICULITIS [None]
